FAERS Safety Report 14180711 (Version 2)
Quarter: 2017Q4

REPORT INFORMATION
  Report Type: Spontaneous
  Country: HU (occurrence: HU)
  Receive Date: 20171110
  Receipt Date: 20171117
  Transmission Date: 20180321
  Serious: Yes (Other)
  Sender: FDA-Public Use
  Company Number: PHHY2017HU162865

PATIENT
  Age: 45 Year
  Sex: Female

DRUGS (7)
  1. AZATHIOPRINE. [Concomitant]
     Active Substance: AZATHIOPRINE
     Dosage: 100 MG, UNK (THREE PERIODS)
     Route: 065
  2. METHYLPREDNISOLONE. [Suspect]
     Active Substance: METHYLPREDNISOLONE
     Indication: MYASTHENIA GRAVIS
     Dosage: 8-24 MG, QD
     Route: 065
  3. PYRIDOSTIGMINE [Concomitant]
     Active Substance: PYRIDOSTIGMINE
     Indication: MYASTHENIA GRAVIS
     Route: 065
  4. AMBENONIUM CHLORIDE [Concomitant]
     Active Substance: AMBENONIUM CHLORIDE
     Indication: MYASTHENIA GRAVIS
     Route: 065
  5. CICLOSPORIN [Concomitant]
     Active Substance: CYCLOSPORINE
     Indication: IMMUNOSUPPRESSANT DRUG THERAPY
     Dosage: 100 MG, UNK (TRIED IN TWO PERIODS)
     Route: 065
  6. EPHEDRINE. [Concomitant]
     Active Substance: EPHEDRINE
     Indication: MYASTHENIA GRAVIS
     Route: 065
  7. AZATHIOPRINE. [Concomitant]
     Active Substance: AZATHIOPRINE
     Indication: IMMUNOSUPPRESSANT DRUG THERAPY
     Dosage: UNK
     Route: 065
     Dates: start: 2012

REACTIONS (3)
  - Spinal compression fracture [Unknown]
  - Chorioretinopathy [Unknown]
  - Cataract [Unknown]

NARRATIVE: CASE EVENT DATE: 2006
